FAERS Safety Report 5140593-2 (Version None)
Quarter: 2006Q4

REPORT INFORMATION
  Report Type: 
  Country: None (occurrence: None)
  Receive Date: 20061024
  Receipt Date: 20061009
  Transmission Date: 20070319
  Serious: Yes (Hospitalization)
  Sender: FDA-Public Use
  Company Number: FI200610002064

PATIENT
  Age: 58 Year
  Sex: Male

DRUGS (2)
  1. CIALIS [Suspect]
     Indication: ERECTILE DYSFUNCTION
     Dosage: 10 MG DAILY (1/D) ORAL
     Route: 048
     Dates: start: 20060901
  2. IMOVANE (ZOPICLONE) [Concomitant]

REACTIONS (1)
  - HAEMOGLOBIN DECREASED [None]
